FAERS Safety Report 8059356-3 (Version None)
Quarter: 2012Q1

REPORT INFORMATION
  Report Type: 
  Country: None (occurrence: None)
  Receive Date: 20120112
  Receipt Date: 20120111
  Transmission Date: 20120608
  Serious: Yes (Other)
  Sender: FDA-Public Use
  Company Number: 1000026554

PATIENT
  Age: 84 Year
  Sex: Male

DRUGS (4)
  1. ARICEPT D (DONEPEZIL HYDROCHLORIDE) (DONEPEZIL HYDROCHLORIDE) [Concomitant]
  2. NORVASC [Concomitant]
  3. MEMANTINE HYDROCHLORIDE [Suspect]
     Indication: DEMENTIA ALZHEIMER'S TYPE
     Dosage: 5 MG (5 MG, 1 IN 1 D), ORAL
     Route: 048
     Dates: start: 20111115, end: 20111123
  4. COMELIAN KOWA (DILAZEP DIHYDROCHLORIDE) (DILAZEP DIHYDROCHLORIDE) [Concomitant]

REACTIONS (7)
  - DEPRESSED LEVEL OF CONSCIOUSNESS [None]
  - BLOOD PRESSURE INCREASED [None]
  - ANAEMIA [None]
  - SHOCK [None]
  - PLATELET COUNT DECREASED [None]
  - RENAL FAILURE ACUTE [None]
  - DUODENAL ULCER HAEMORRHAGE [None]
